FAERS Safety Report 6256987-8 (Version None)
Quarter: 2009Q3

REPORT INFORMATION
  Report Type: 
  Country: None (occurrence: None)
  Receive Date: 20090706
  Receipt Date: 20090629
  Transmission Date: 20100115
  Serious: Yes (Congenital Anomaly)
  Sender: FDA-Public Use
  Company Number: A0751148A

PATIENT
  Sex: Female

DRUGS (6)
  1. PAXIL [Suspect]
     Indication: DRUG USE FOR UNKNOWN INDICATION
  2. TRIAMCINOLONE [Concomitant]
     Dates: start: 20020901
  3. PREDNISONE [Concomitant]
     Dates: start: 20020901
  4. AZITHROMYCIN [Concomitant]
     Dates: start: 20020918
  5. ATROVENT [Concomitant]
     Dates: start: 20030131
  6. OXYCONTIN [Concomitant]
     Dates: start: 20030131

REACTIONS (6)
  - ANAEMIA [None]
  - CARDIAC MURMUR [None]
  - DRUG EXPOSURE DURING PREGNANCY [None]
  - ELECTROCARDIOGRAM ABNORMAL [None]
  - PALPITATIONS [None]
  - THALASSAEMIA BETA [None]
